FAERS Safety Report 5359628-7 (Version None)
Quarter: 2007Q2

REPORT INFORMATION
  Report Type: 
  Country: None (occurrence: None)
  Receive Date: 20070615
  Receipt Date: 20070605
  Transmission Date: 20071010
  Serious: Yes (Hospitalization)
  Sender: FDA-Public Use
  Company Number: DE-SHR-DE-2007-016528

PATIENT
  Age: 76 Year
  Sex: Female
  Weight: 71 kg

DRUGS (6)
  1. MAGNEVIST [Suspect]
     Dosage: 15 ML, 1 DOSE
     Route: 042
     Dates: start: 20070426, end: 20070426
  2. VEROSPIRON [Concomitant]
  3. FALITHROM [Concomitant]
  4. BISOPROLOL FUMARATE [Concomitant]
  5. RAMIPRIL [Concomitant]
  6. TAXAMID [Concomitant]

REACTIONS (3)
  - DERMATITIS BULLOUS [None]
  - MUCOUS MEMBRANE DISORDER [None]
  - URTICARIA [None]
